FAERS Safety Report 23609391 (Version 1)
Quarter: 2024Q1

REPORT INFORMATION
  Report Type: Spontaneous
  Country: US (occurrence: US)
  Receive Date: 20240308
  Receipt Date: 20240308
  Transmission Date: 20240410
  Serious: No
  Sender: FDA-Public Use
  Company Number: US-BRISTOL-MYERS SQUIBB COMPANY-2024-037518

PATIENT
  Age: 58 Year
  Sex: Female
  Weight: 92.99 kg

DRUGS (1)
  1. REVLIMID [Suspect]
     Active Substance: LENALIDOMIDE
     Indication: Plasma cell myeloma
     Route: 048

REACTIONS (6)
  - Headache [Unknown]
  - Abdominal pain upper [Unknown]
  - Nausea [Unknown]
  - Back pain [Unknown]
  - Off label use [Unknown]
  - Musculoskeletal chest pain [Unknown]
